FAERS Safety Report 5072259-1 (Version None)
Quarter: 2006Q3

REPORT INFORMATION
  Report Type: 
  Country: None (occurrence: None)
  Receive Date: 20060710
  Receipt Date: 20050822
  Transmission Date: 20061208
  Serious: Yes (Hospitalization)
  Sender: FDA-Public Use
  Company Number: PHEH2005US09326

PATIENT
  Age: 41 Year
  Sex: Male

DRUGS (1)
  1. GLEEVEC [Suspect]
     Indication: GASTROINTESTINAL STROMAL TUMOUR
     Dosage: 600 MG, QD, ORAL
     Route: 048
     Dates: start: 20010801, end: 20050815

REACTIONS (5)
  - ADHESIOLYSIS [None]
  - BLOOD BILIRUBIN INCREASED [None]
  - PYREXIA [None]
  - SMALL INTESTINAL OBSTRUCTION [None]
  - WHITE BLOOD CELL COUNT DECREASED [None]
